FAERS Safety Report 25036085 (Version 1)
Quarter: 2025Q1

REPORT INFORMATION
  Report Type: Spontaneous
  Country: BR (occurrence: BR)
  Receive Date: 20250304
  Receipt Date: 20250304
  Transmission Date: 20250408
  Serious: Yes (Other)
  Sender: BIOGEN
  Company Number: BR-BIOGEN-2025BI01302290

PATIENT
  Sex: Female
  Weight: 71 kg

DRUGS (1)
  1. TECFIDERA [Suspect]
     Active Substance: DIMETHYL FUMARATE
     Indication: Multiple sclerosis
     Route: 050
     Dates: start: 2018, end: 201912

REACTIONS (3)
  - Abortion spontaneous [Recovered/Resolved]
  - Hypercoagulation [Unknown]
  - Maternal exposure during pregnancy [Recovered/Resolved]
